FAERS Safety Report 7740629-6 (Version None)
Quarter: 2011Q3

REPORT INFORMATION
  Report Type: 
  Country: None (occurrence: None)
  Receive Date: 20110909
  Receipt Date: 20110907
  Transmission Date: 20111222
  Serious: Yes (Death, Life-Threatening, Hospitalization)
  Sender: FDA-Public Use
  Company Number: GB-B.I. PHARMACEUTICALS,INC./RIDGEFIELD-2011-UK-00457UK

PATIENT
  Sex: Female
  Weight: 54 kg

DRUGS (15)
  1. BISOPROLOL FUMARATE [Concomitant]
     Indication: HYPERTENSION
  2. EZETIMIBE [Concomitant]
     Indication: MYOCARDIAL INFARCTION
  3. OMEPRAZOLE [Concomitant]
     Indication: DUODENAL ULCER
     Dosage: 20MG 1/1 DAYS
     Route: 048
  4. LACTULOSE [Concomitant]
     Indication: POST PROCEDURAL CONSTIPATION
     Route: 048
  5. PRADAXA [Suspect]
     Indication: HIP ARTHROPLASTY
     Dosage: 150MG 1/1 DAYS
     Route: 048
     Dates: start: 20110420, end: 20110424
  6. EZETIMIBE [Concomitant]
     Indication: BLOOD CHOLESTEROL INCREASED
  7. RAMIPRIL [Concomitant]
     Dosage: 5MG 1/1 DAYS
     Route: 048
  8. BISOPROLOL FUMARATE [Concomitant]
     Indication: MYOCARDIAL INFARCTION
  9. OXYCODONE HCL [Concomitant]
     Indication: PROCEDURAL PAIN
     Route: 048
  10. BISOPROLOL FUMARATE [Concomitant]
     Indication: CORONARY ARTERY BYPASS
     Dosage: 2.5MG 1/1 DAYS
     Route: 048
  11. OXYCONTIN [Concomitant]
     Indication: PROCEDURAL PAIN
     Dosage: 10MG 2/1 DAYS
     Route: 048
  12. SENNA [Concomitant]
     Indication: POST PROCEDURAL CONSTIPATION
     Route: 048
  13. EZETIMIBE [Concomitant]
     Indication: CORONARY ARTERY BYPASS
     Dosage: 10MG 1/1 DAYS
     Route: 048
  14. LACTULOSE [Concomitant]
  15. ACETAMINOPHEN [Concomitant]
     Indication: PROCEDURAL PAIN
     Dosage: 1G 4/1 DAYS
     Route: 048

REACTIONS (8)
  - INFLAMMATION OF WOUND [None]
  - UPPER GASTROINTESTINAL HAEMORRHAGE [None]
  - ABDOMINAL PAIN [None]
  - MUCOSAL ULCERATION [None]
  - RENAL FAILURE [None]
  - MULTI-ORGAN FAILURE [None]
  - HAEMATEMESIS [None]
  - HYPOTENSION [None]
